FAERS Safety Report 9632575 (Version 1)
Quarter: 2013Q4

REPORT INFORMATION
  Report Type: Spontaneous
  Country: FR (occurrence: FR)
  Receive Date: 20131018
  Receipt Date: 20131018
  Transmission Date: 20140711
  Serious: Yes (Death)
  Sender: FDA-Public Use
  Company Number: FR-ELI_LILLY_AND_COMPANY-FR201310004308

PATIENT
  Age: 58 Year
  Sex: Male

DRUGS (8)
  1. ALIMTA [Suspect]
     Indication: LUNG NEOPLASM MALIGNANT
     Dosage: UNK
     Route: 042
     Dates: start: 20111227
  2. CARBOPLATIN [Suspect]
     Indication: LUNG NEOPLASM MALIGNANT
     Dosage: UNK
     Route: 042
     Dates: start: 20111227
  3. FRAGMINE [Concomitant]
  4. TAHOR [Concomitant]
  5. SPIRIVA [Concomitant]
  6. KARDEGIC [Concomitant]
  7. TELFAST [Concomitant]
  8. XANAX [Concomitant]

REACTIONS (8)
  - Bone marrow failure [Fatal]
  - Hallucination [Unknown]
  - Confusional state [Unknown]
  - Asterixis [Unknown]
  - Encephalopathy [Unknown]
  - Inflammation [Unknown]
  - Respiratory tract congestion [Unknown]
  - Off label use [Unknown]
